FAERS Safety Report 10930761 (Version 1)
Quarter: 2015Q1

REPORT INFORMATION
  Report Type: Spontaneous
  Country: JP (occurrence: JP)
  Receive Date: 20150319
  Receipt Date: 20150319
  Transmission Date: 20150721
  Serious: Yes (Death, Hospitalization, Other)
  Sender: FDA-Public Use
  Company Number: JP-SA-2015SA032416

PATIENT
  Age: 74 Year
  Sex: Male

DRUGS (5)
  1. LEUCOVORIN [Concomitant]
     Active Substance: LEUCOVORIN
     Indication: COLORECTAL CANCER METASTATIC
     Route: 065
     Dates: end: 2013
  2. OXALIPLATIN. [Suspect]
     Active Substance: OXALIPLATIN
     Indication: COLORECTAL CANCER METASTATIC
     Route: 065
     Dates: start: 201107
  3. FLUOROURACIL. [Concomitant]
     Active Substance: FLUOROURACIL
     Indication: COLORECTAL CANCER METASTATIC
     Dosage: 3 CYCLES
     Route: 065
     Dates: end: 2013
  4. FLUOROURACIL. [Concomitant]
     Active Substance: FLUOROURACIL
     Indication: COLORECTAL CANCER METASTATIC
     Dosage: 9 CYCLES
     Route: 065
     Dates: start: 201107
  5. LEUCOVORIN [Concomitant]
     Active Substance: LEUCOVORIN
     Indication: COLORECTAL CANCER METASTATIC
     Route: 065
     Dates: start: 201107

REACTIONS (11)
  - Erythropoiesis abnormal [Fatal]
  - Anaemia [Fatal]
  - Acute myeloid leukaemia [Fatal]
  - White blood cell count decreased [Fatal]
  - Thrombocytopenia [Fatal]
  - Megakaryocytes decreased [Fatal]
  - Dysplasia [Fatal]
  - Neutropenia [Fatal]
  - Neuropathy peripheral [Unknown]
  - Pancytopenia [Fatal]
  - Differential white blood cell count abnormal [Fatal]

NARRATIVE: CASE EVENT DATE: 201304
